FAERS Safety Report 7217484-6 (Version None)
Quarter: 2011Q1

REPORT INFORMATION
  Report Type: 
  Country: None (occurrence: None)
  Receive Date: 20110110
  Receipt Date: 20110106
  Transmission Date: 20110831
  Serious: Yes (Death, Hospitalization)
  Sender: FDA-Public Use
  Company Number: PHHY2008AR37246

PATIENT
  Sex: Female

DRUGS (2)
  1. CLOZAPINE [Suspect]
     Dosage: UNK
     Dates: start: 19970303
  2. ETUMINA [Concomitant]
     Dosage: UNK

REACTIONS (2)
  - COMPLETED SUICIDE [None]
  - OVERDOSE [None]
